FAERS Safety Report 6546857-X (Version None)
Quarter: 2010Q1

REPORT INFORMATION
  Report Type: 
  Country: None (occurrence: None)
  Receive Date: 20100122
  Receipt Date: 20100114
  Transmission Date: 20100710
  Serious: Yes (Death, Life-Threatening, Hospitalization, Other)
  Sender: FDA-Public Use
  Company Number: GB-ABBOTT-08P-167-0482378-00

PATIENT
  Age: 28 Year
  Sex: Male

DRUGS (7)
  1. HUMIRA [Suspect]
     Indication: PSORIATIC ARTHROPATHY
     Route: 058
     Dates: start: 20080812, end: 20080812
  2. HUMIRA [Suspect]
     Route: 058
     Dates: start: 20080826, end: 20080826
  3. HUMIRA [Suspect]
     Route: 058
     Dates: start: 20080909, end: 20080909
  4. HUMIRA [Suspect]
     Dates: start: 20080923, end: 20081007
  5. BISOPROLOL FUMARATE [Concomitant]
     Indication: ATRIAL FIBRILLATION
     Dosage: PATIENT NOT GREATLY COMPLIANT
  6. FLECAINIDE [Concomitant]
     Indication: ATRIAL FIBRILLATION
     Dosage: PATIENT NOT GREATLY COMPLIANT
  7. CLOPIDOGREL [Concomitant]
     Indication: DRUG USE FOR UNKNOWN INDICATION
     Dosage: PATIENT NOT GREATLY COMPLIANT

REACTIONS (5)
  - ATRIAL FIBRILLATION [None]
  - CARDIAC ARREST [None]
  - HYPOXIC ENCEPHALOPATHY [None]
  - LONG QT SYNDROME [None]
  - VENTRICULAR FIBRILLATION [None]
